FAERS Safety Report 16957936 (Version 1)
Quarter: 2019Q4

REPORT INFORMATION
  Report Type: Report from Study
  Country: CN (occurrence: CN)
  Receive Date: 20191024
  Receipt Date: 20191024
  Transmission Date: 20200122
  Serious: Yes (Hospitalization, Other)
  Sender: FDA-Public Use
  Company Number: CN-ASTRAZENECA-2019SF47984

PATIENT
  Age: 67 Year
  Sex: Female

DRUGS (4)
  1. LANTUS [Concomitant]
     Active Substance: INSULIN GLARGINE
     Dosage: 16 UNITS QN
  2. NOVORAPID [Concomitant]
     Active Substance: INSULIN ASPART
     Dosage: 8 UNITS
  3. NOVORAPID [Concomitant]
     Active Substance: INSULIN ASPART
     Dosage: 20 UNITS TID
  4. BYETTA [Suspect]
     Active Substance: EXENATIDE
     Indication: DIABETES MELLITUS
     Route: 058
     Dates: start: 20190617

REACTIONS (5)
  - Oropharyngeal discomfort [Unknown]
  - Dry mouth [Not Recovered/Not Resolved]
  - Therapeutic product effect decreased [Unknown]
  - Cardiac disorder [Recovered/Resolved]
  - Blood glucose increased [Unknown]

NARRATIVE: CASE EVENT DATE: 201909
